FAERS Safety Report 4296595-1 (Version None)
Quarter: 2004Q1

REPORT INFORMATION
  Report Type: 
  Country: None (occurrence: None)
  Receive Date: 20040217
  Receipt Date: 20040205
  Transmission Date: 20041129
  Serious: Yes (Other)
  Sender: FDA-Public Use
  Company Number: GB-GLAXOSMITHKLINE-B0322540A

PATIENT
  Age: 66 Year
  Sex: Female

DRUGS (6)
  1. AVANDIA [Suspect]
     Dosage: 4MG UNKNOWN
     Route: 048
     Dates: start: 20030415, end: 20040130
  2. ATENOLOL [Concomitant]
     Dosage: 50MG PER DAY
     Route: 048
  3. GLICLAZIDE [Concomitant]
     Dosage: 80MG TWICE PER DAY
     Route: 048
  4. ATORVASTATIN [Concomitant]
     Dosage: 20MG PER DAY
     Route: 065
  5. METFORMIN HCL [Concomitant]
     Dosage: 850MG THREE TIMES PER DAY
     Route: 065
  6. ASPIRIN [Concomitant]
     Dosage: 75MG PER DAY
     Route: 048

REACTIONS (3)
  - ALANINE AMINOTRANSFERASE INCREASED [None]
  - PAIN IN EXTREMITY [None]
  - PARAESTHESIA [None]
